FAERS Safety Report 17126605 (Version 1)
Quarter: 2019Q4

REPORT INFORMATION
  Report Type: Spontaneous
  Country: US (occurrence: US)
  Receive Date: 20191209
  Receipt Date: 20191209
  Transmission Date: 20200122
  Serious: No
  Sender: FDA-Public Use
  Company Number: US-UCBSA-2017011709

PATIENT
  Age: 53 Year
  Sex: Female
  Weight: 84 kg

DRUGS (2)
  1. RECLAST [Concomitant]
     Active Substance: ZOLEDRONIC ACID
     Indication: PRODUCT USED FOR UNKNOWN INDICATION
     Dosage: UNK DOSE, GIVEN ONCE A YEAR
     Route: 042
     Dates: end: 20170320
  2. CIMZIA [Suspect]
     Active Substance: CERTOLIZUMAB PEGOL
     Indication: PRODUCT USED FOR UNKNOWN INDICATION
     Dosage: 200 MG, EV 2 WEEKS(QOW)
     Route: 058
     Dates: start: 20170307, end: 201703

REACTIONS (4)
  - Incorrect dose administered [Unknown]
  - Injection site rash [Not Recovered/Not Resolved]
  - Fungal infection [Not Recovered/Not Resolved]
  - Malaise [Unknown]

NARRATIVE: CASE EVENT DATE: 201703
